FAERS Safety Report 10419522 (Version 1)
Quarter: 2014Q2

REPORT INFORMATION
  Report Type: Spontaneous
  Country: US (occurrence: None)
  Receive Date: 20140625
  Receipt Date: 20140625
  Transmission Date: 20141212
  Serious: No
  Sender: FDA-Public Use
  Company Number: A-NJ2014-95487

PATIENT
  Age: 68 Year
  Sex: Female

DRUGS (2)
  1. OPSUMIT (MACITENTAN) TABLET [Suspect]
     Indication: CONNECTIVE TISSUE DISORDER
     Route: 048
     Dates: start: 20140124
  2. ADCIRCA (TADALAFIL) [Suspect]

REACTIONS (2)
  - Muscle spasms [None]
  - Oedema peripheral [None]
